FAERS Safety Report 21743939 (Version 1)
Quarter: 2022Q4

REPORT INFORMATION
  Report Type: Spontaneous
  Country: US (occurrence: US)
  Receive Date: 20221217
  Receipt Date: 20221217
  Transmission Date: 20230113
  Serious: Yes (Hospitalization, Other)
  Sender: FDA-Public Use
  Company Number: US-TAKEDA-2022TUS095797

PATIENT
  Age: 83 Year
  Sex: Female
  Weight: 55.33 kg

DRUGS (4)
  1. LIALDA [Suspect]
     Active Substance: MESALAMINE
     Indication: Colitis ulcerative
     Dosage: 1.2 GRAM, BID
     Route: 048
     Dates: end: 20220325
  2. ZYRTEC [Concomitant]
     Active Substance: CETIRIZINE HYDROCHLORIDE
     Indication: Rash pruritic
  3. PROBIOTICS NOS [Concomitant]
     Active Substance: PROBIOTICS NOS
  4. CLARITIN [Concomitant]
     Active Substance: LORATADINE

REACTIONS (4)
  - Organising pneumonia [Unknown]
  - Adverse drug reaction [Unknown]
  - Anxiety [Unknown]
  - Flatulence [Unknown]

NARRATIVE: CASE EVENT DATE: 20220301
